FAERS Safety Report 8444919-3 (Version None)
Quarter: 2012Q2

REPORT INFORMATION
  Report Type: 
  Country: None (occurrence: None)
  Receive Date: 20120611
  Receipt Date: 20120530
  Transmission Date: 20120825
  Serious: Yes (Hospitalization, Other)
  Sender: FDA-Public Use
  Company Number: ACO_22244_2010

PATIENT
  Age: 54 Year
  Sex: Female
  Weight: 47 kg

DRUGS (9)
  1. AVONEX [Concomitant]
  2. AMPYRA [Suspect]
     Indication: GAIT DISTURBANCE
     Dosage: 10 MG, BID, ORAL
     Route: 048
     Dates: start: 20120101, end: 20120101
  3. AMPYRA [Suspect]
     Indication: GAIT DISTURBANCE
     Dosage: 10 MG, BID, ORAL
     Route: 048
     Dates: start: 20100408, end: 20100601
  4. URECHOLINE [Concomitant]
  5. DITROPAN [Concomitant]
  6. SYNTHROID (LEOTHYROXINE SODIUM) [Concomitant]
  7. PRILOSEC [Concomitant]
  8. PROZAC [Concomitant]
  9. TYSABRI [Suspect]
     Indication: MULTIPLE SCLEROSIS
     Dosage: [ONE INFUSION ONCE A MONTH], INTRAVENOUS
     Route: 042
     Dates: start: 20100408, end: 20100601

REACTIONS (11)
  - HEMIPARESIS [None]
  - RIB FRACTURE [None]
  - DRUG INEFFECTIVE [None]
  - MALAISE [None]
  - GAIT DISTURBANCE [None]
  - CONTUSION [None]
  - BALANCE DISORDER [None]
  - PARAESTHESIA [None]
  - MULTIPLE SCLEROSIS RELAPSE [None]
  - COORDINATION ABNORMAL [None]
  - FALL [None]
